APPROVED DRUG PRODUCT: LEVOFLOXACIN
Active Ingredient: LEVOFLOXACIN
Strength: EQ 750MG/30ML (EQ 25MG/ML)
Dosage Form/Route: INJECTABLE;INJECTION
Application: A202590 | Product #002
Applicant: AVET LIFESCIENCES LTD
Approved: Jan 24, 2013 | RLD: No | RS: No | Type: DISCN